FAERS Safety Report 6531406-2 (Version None)
Quarter: 2010Q1

REPORT INFORMATION
  Report Type: 
  Country: None (occurrence: None)
  Receive Date: 20100108
  Receipt Date: 20091203
  Transmission Date: 20100710
  Serious: No
  Sender: FDA-Public Use
  Company Number: A0815814A

PATIENT
  Age: 48 Year
  Sex: Female

DRUGS (5)
  1. TYKERB [Suspect]
     Indication: BREAST CANCER
     Dosage: 1250MG PER DAY
     Route: 048
     Dates: start: 20091102, end: 20091105
  2. XELODA [Concomitant]
  3. AMBIEN [Concomitant]
  4. LORAZEPAM [Concomitant]
  5. IMODIUM [Concomitant]

REACTIONS (6)
  - DECREASED APPETITE [None]
  - DIARRHOEA [None]
  - FATIGUE [None]
  - NAUSEA [None]
  - RASH [None]
  - VOMITING [None]
